FAERS Safety Report 5797540-X (Version None)
Quarter: 2008Q2

REPORT INFORMATION
  Report Type: 
  Country: None (occurrence: None)
  Receive Date: 20080618
  Receipt Date: 20070928
  Transmission Date: 20081010
  Serious: Yes (Other)
  Sender: FDA-Public Use
  Company Number: 200716894US

PATIENT
  Age: 75 Year
  Sex: Female

DRUGS (4)
  1. LANTUS [Suspect]
     Indication: TYPE 2 DIABETES MELLITUS
     Dosage: 17 U D INJ
     Route: 042
     Dates: start: 20070101
  2. AMLODIPINE, BENAZEPRIL HYDROCHLORIDE (LOTREL /01289101/) [Concomitant]
  3. SEVELAMER HYDROCHLORIDE (RENAGEL /01459902/) [Concomitant]
  4. ASPIRIN [Concomitant]

REACTIONS (3)
  - COLD SWEAT [None]
  - FEELING HOT [None]
  - HYPOGLYCAEMIA [None]
